FAERS Safety Report 9206417 (Version 2)
Quarter: 2013Q2

REPORT INFORMATION
  Report Type: Spontaneous
  Country: DE (occurrence: DE)
  Receive Date: 20130403
  Receipt Date: 20130408
  Transmission Date: 20140414
  Serious: Yes (Other)
  Sender: FDA-Public Use
  Company Number: DE-UCBSA-081937

PATIENT
  Age: 65 Year
  Sex: Female

DRUGS (2)
  1. KEPPRA [Suspect]
     Dosage: UNKOWN DAILY DOSE
     Dates: start: 201302
  2. FORTECORTIN [Concomitant]

REACTIONS (1)
  - Toxic epidermal necrolysis [Unknown]
